FAERS Safety Report 8048229-8 (Version None)
Quarter: 2012Q1

REPORT INFORMATION
  Report Type: 
  Country: None (occurrence: None)
  Receive Date: 20120113
  Receipt Date: 20120113
  Transmission Date: 20120608
  Serious: No
  Sender: FDA-Public Use
  Company Number: None

PATIENT
  Age: 61 Year
  Sex: Male

DRUGS (1)
  1. AZITHROMYCIN [Suspect]
     Dates: start: 20081002, end: 20081008

REACTIONS (18)
  - ASPARTATE AMINOTRANSFERASE INCREASED [None]
  - MYALGIA [None]
  - HEPATIC STEATOSIS [None]
  - DECREASED APPETITE [None]
  - ARTHRALGIA [None]
  - ALANINE AMINOTRANSFERASE INCREASED [None]
  - HEPATOMEGALY [None]
  - LIVER INJURY [None]
  - FATIGUE [None]
  - VOMITING [None]
  - JAUNDICE [None]
  - BLOOD ALKALINE PHOSPHATASE INCREASED [None]
  - SPLENOMEGALY [None]
  - HEPATIC CIRRHOSIS [None]
  - NAUSEA [None]
  - BLOOD BILIRUBIN INCREASED [None]
  - PROTHROMBIN TIME PROLONGED [None]
  - ASCITES [None]
